FAERS Safety Report 7798200-6 (Version None)
Quarter: 2011Q4

REPORT INFORMATION
  Report Type: 
  Country: None (occurrence: None)
  Receive Date: 20111005
  Receipt Date: 20110929
  Transmission Date: 20120403
  Serious: Yes (Other)
  Sender: FDA-Public Use
  Company Number: US-BAYER-2011-024593

PATIENT
  Sex: Female
  Weight: 132.88 kg

DRUGS (27)
  1. MULTIHANCE [Suspect]
     Indication: NUCLEAR MAGNETIC RESONANCE IMAGING
  2. PROCRIT [Concomitant]
  3. EPOGEN [Concomitant]
  4. CARVEDILOL [Concomitant]
  5. ISOSORBIDE MONONITRATE [Concomitant]
  6. ZAROXOLYN [Concomitant]
  7. OMNISCAN [Suspect]
     Indication: ANGIOGRAM
  8. MULTIHANCE [Suspect]
     Indication: ANGIOGRAM
  9. ARANESP [Concomitant]
  10. DILTIAZEM HCL [Concomitant]
  11. SENSIPAR [Concomitant]
  12. PROHANCE [Suspect]
     Indication: NUCLEAR MAGNETIC RESONANCE IMAGING
  13. HYDRALAZINE HCL [Concomitant]
  14. MAGNEVIST [Suspect]
     Indication: NUCLEAR MAGNETIC RESONANCE IMAGING
     Dosage: UNK
  15. OMNISCAN [Suspect]
     Indication: NUCLEAR MAGNETIC RESONANCE IMAGING
     Dosage: UNK
  16. RENAGEL [Concomitant]
  17. FUROSEMIDE [Concomitant]
  18. LISINOPRIL [Concomitant]
  19. PENTOXIFYLLINE [Concomitant]
  20. COUMADIN [Concomitant]
  21. OPTIMARK [Suspect]
     Indication: ANGIOGRAM
  22. PROHANCE [Suspect]
     Indication: ANGIOGRAM
  23. VASOTEC [Concomitant]
  24. MAGNEVIST [Suspect]
     Indication: ANGIOGRAM
  25. OPTIMARK [Suspect]
     Indication: NUCLEAR MAGNETIC RESONANCE IMAGING
  26. ZOLOFT [Concomitant]
  27. FERRLECIT [Concomitant]

REACTIONS (6)
  - SKIN INDURATION [None]
  - PAIN IN EXTREMITY [None]
  - SKIN HYPERPIGMENTATION [None]
  - MUSCULOSKELETAL STIFFNESS [None]
  - NEPHROGENIC SYSTEMIC FIBROSIS [None]
  - PAIN [None]
